FAERS Safety Report 10176235 (Version 1)
Quarter: 2014Q2

REPORT INFORMATION
  Report Type: Spontaneous
  Country: US (occurrence: None)
  Receive Date: 20140515
  Receipt Date: 20140515
  Transmission Date: 20141212
  Serious: No
  Sender: FDA-Public Use
  Company Number: None

PATIENT
  Age: 49 Year
  Sex: Female
  Weight: 88.45 kg

DRUGS (19)
  1. CYMBALTA [Suspect]
     Indication: COMPLEX REGIONAL PAIN SYNDROME
     Route: 048
     Dates: start: 2007
  2. BIPAP SLEEP APNEA [Concomitant]
  3. VENTOLIN INHALER [Concomitant]
  4. BACLOFEN [Concomitant]
  5. BLACK COHOSH [Concomitant]
  6. VALIUM [Concomitant]
  7. CYMBALTA [Concomitant]
  8. NEURONTIN [Concomitant]
  9. ADVAIR [Concomitant]
  10. LIDOCAINE PATCHES [Concomitant]
  11. SINGULAIR [Concomitant]
  12. OMEPRAZOLE [Concomitant]
  13. OXYBUTYNIN [Concomitant]
  14. MIRALAX [Concomitant]
  15. IMITREX [Concomitant]
  16. ELAVIL [Concomitant]
  17. DILAUDID [Concomitant]
  18. OPANA ER [Concomitant]
  19. VIT D [Concomitant]

REACTIONS (10)
  - Drug withdrawal syndrome [None]
  - Hot flush [None]
  - Feeling abnormal [None]
  - Drug intolerance [None]
  - Constipation [None]
  - Sleep disorder [None]
  - Pain [None]
  - Chills [None]
  - Irritability [None]
  - Hyperhidrosis [None]
